FAERS Safety Report 24160698 (Version 3)
Quarter: 2024Q3

REPORT INFORMATION
  Report Type: Spontaneous
  Country: US (occurrence: US)
  Receive Date: 20240801
  Receipt Date: 20240826
  Transmission Date: 20241016
  Serious: Yes (Hospitalization)
  Sender: BRISTOL MYERS SQUIBB
  Company Number: US-BRISTOL-MYERS SQUIBB COMPANY-2024-121273

PATIENT
  Age: 82 Year
  Sex: Female

DRUGS (1)
  1. POMALYST [Suspect]
     Active Substance: POMALIDOMIDE
     Indication: Plasma cell myeloma refractory
     Dosage: TAKE ONE CAPSULE BY MOUTH DAILY FOR 21 DAYS FOLLOWED BY 7 DAYS
     Route: 048

REACTIONS (3)
  - Protein total increased [Not Recovered/Not Resolved]
  - Lethargy [Not Recovered/Not Resolved]
  - Dehydration [Not Recovered/Not Resolved]
